FAERS Safety Report 12704166 (Version 1)
Quarter: 2016Q3

REPORT INFORMATION
  Report Type: Spontaneous
  Country: GB (occurrence: GB)
  Receive Date: 20160831
  Receipt Date: 20160831
  Transmission Date: 20161109
  Serious: Yes (Other)
  Sender: FDA-Public Use
  Company Number: GB-TEVA-688337ACC

PATIENT
  Age: 9 Year
  Sex: Male

DRUGS (1)
  1. QVAR [Suspect]
     Active Substance: BECLOMETHASONE DIPROPIONATE

REACTIONS (6)
  - Suicidal ideation [Unknown]
  - Drug administered to patient of inappropriate age [None]
  - Depression [Unknown]
  - Product use issue [Unknown]
  - Morbid thoughts [Unknown]
  - Irritability [Unknown]
